FAERS Safety Report 5490860-8 (Version None)
Quarter: 2007Q4

REPORT INFORMATION
  Report Type: 
  Country: None (occurrence: None)
  Receive Date: 20071019
  Receipt Date: 20071008
  Transmission Date: 20080405
  Serious: Yes (Other)
  Sender: FDA-Public Use
  Company Number: US-ROCHE-509464

PATIENT
  Age: 17 Year
  Sex: Male
  Weight: 80.7 kg

DRUGS (1)
  1. ACCUTANE [Suspect]
     Indication: ACNE
     Route: 065
     Dates: start: 20010412, end: 20010625

REACTIONS (6)
  - ANXIETY [None]
  - COLITIS ULCERATIVE [None]
  - DEPRESSION [None]
  - FEAR [None]
  - FRACTURE [None]
  - STRESS [None]
